FAERS Safety Report 6711371-5 (Version None)
Quarter: 2010Q2

REPORT INFORMATION
  Report Type: 
  Country: None (occurrence: None)
  Receive Date: 20100505
  Receipt Date: 20100420
  Transmission Date: 20101027
  Serious: Yes (Hospitalization, Other)
  Sender: FDA-Public Use
  Company Number: BR-PFIZER INC-2010049681

PATIENT
  Sex: Female

DRUGS (10)
  1. XALATAN [Suspect]
     Indication: GLAUCOMA
     Route: 047
  2. BENICAR [Concomitant]
     Indication: HYPERTENSION
     Dosage: UNK
  3. ASPIRIN [Concomitant]
     Dosage: UNK
  4. CIPROFLOXACIN HYDROCHLORIDE [Concomitant]
     Dosage: UNK
  5. SIMVASTATIN [Concomitant]
     Dosage: UNK
  6. OMEPRAZOLE [Concomitant]
     Indication: GASTRIC DISORDER
     Dosage: UNK
  7. CHLORTALIDONE [Concomitant]
     Dosage: UNK
  8. BROMOPRIDE [Concomitant]
     Dosage: UNK
  9. PRAMIPEXOLE [Concomitant]
     Dosage: UNK
  10. LABYRIN [Concomitant]
     Dosage: UNK

REACTIONS (4)
  - CEREBROVASCULAR ACCIDENT [None]
  - EYE DISORDER [None]
  - EYE IRRITATION [None]
  - WOUND [None]
